FAERS Safety Report 8113019-4 (Version None)
Quarter: 2012Q1

REPORT INFORMATION
  Report Type: 
  Country: None (occurrence: None)
  Receive Date: 20120203
  Receipt Date: 20120123
  Transmission Date: 20120608
  Serious: Yes (Hospitalization, Other)
  Sender: FDA-Public Use
  Company Number: ES-ELI_LILLY_AND_COMPANY-ES201201007150

PATIENT
  Sex: Female
  Weight: 70 kg

DRUGS (9)
  1. ARCOXIA [Concomitant]
     Indication: OSTEOPOROSIS
     Dosage: 60 MG, QD
     Route: 048
     Dates: start: 20110101
  2. OMEPRAZOLE [Concomitant]
     Indication: GASTRIC DISORDER
     Dosage: 1 DF, QD
     Route: 048
     Dates: start: 20090101
  3. ESCITALOPRAM [Concomitant]
     Indication: DEPRESSION
     Dosage: 1 DF, QD
     Route: 048
     Dates: start: 20100101
  4. ALPRAZOLAM [Concomitant]
     Indication: ANXIETY
     Dosage: 0.25 MG, QD
     Route: 048
     Dates: start: 20090101
  5. CONDRO SAN [Concomitant]
     Indication: OSTEOPOROSIS
     Dosage: 800 MG, QD
     Route: 048
     Dates: start: 20090101
  6. NAVIXEN PLUS [Concomitant]
     Indication: HYPERTENSION
     Dosage: 1 DF, QD
     Route: 048
     Dates: start: 20060101
  7. SOMAZINA [Concomitant]
     Indication: CEREBROVASCULAR DISORDER
     Dosage: 200 MG, QD
     Route: 048
     Dates: start: 20090101
  8. FORTEO [Suspect]
     Indication: OSTEOPOROSIS
     Dosage: 20 UG, QD
     Route: 058
     Dates: start: 20101008
  9. TRAMADOL HYDROCHLORIDE AND ACETAMINOPHEN [Concomitant]
     Indication: PAIN
     Dosage: 6 DF, QD
     Route: 048
     Dates: start: 20090101

REACTIONS (2)
  - FALL [None]
  - HIP FRACTURE [None]
